FAERS Safety Report 6511396-9 (Version None)
Quarter: 2009Q4

REPORT INFORMATION
  Report Type: 
  Country: None (occurrence: None)
  Receive Date: 20091222
  Receipt Date: 20090417
  Transmission Date: 20100525
  Serious: No
  Sender: FDA-Public Use
  Company Number: US-ASTRAZENECA-2009UW06362

PATIENT
  Age: 18230 Day
  Sex: Female
  Weight: 81.6 kg

DRUGS (7)
  1. CRESTOR [Suspect]
     Indication: BLOOD CHOLESTEROL INCREASED
     Route: 048
     Dates: start: 20090307
  2. EFFEXOR [Concomitant]
     Indication: DEPRESSION
     Route: 048
  3. LAMICTAL [Concomitant]
     Indication: BIPOLAR DISORDER
     Route: 048
  4. VALIUM [Concomitant]
     Indication: ANXIETY
     Route: 048
  5. SPIRIVA [Concomitant]
     Indication: ASTHMA
     Route: 055
  6. NEURONTIN [Concomitant]
     Indication: MOOD ALTERED
     Route: 048
  7. LORTAB [Concomitant]
     Indication: FIBROMYALGIA
     Route: 048

REACTIONS (2)
  - INSOMNIA [None]
  - IRRITABILITY [None]
